FAERS Safety Report 4541229-1 (Version None)
Quarter: 2004Q4

REPORT INFORMATION
  Report Type: 
  Country: None (occurrence: None)
  Receive Date: 20041228
  Receipt Date: 20041218
  Transmission Date: 20050328
  Serious: Yes (Hospitalization)
  Sender: FDA-Public Use
  Company Number: 200416135BCC

PATIENT
  Sex: Female

DRUGS (1)
  1. NEO-SYNEPHRINE (PHENYLEPHRINE HYDROCHLORIDE) [Suspect]
     Dosage: NASAL
     Route: 045

REACTIONS (1)
  - HYPERSENSITIVITY [None]
